FAERS Safety Report 7199191-1 (Version None)
Quarter: 2010Q4

REPORT INFORMATION
  Report Type: 
  Country: None (occurrence: None)
  Receive Date: 20101228
  Receipt Date: 20101213
  Transmission Date: 20110411
  Serious: No
  Sender: FDA-Public Use
  Company Number: PHHY2010US81031

PATIENT
  Sex: Female

DRUGS (1)
  1. FEMARA [Suspect]
     Dosage: 2.5 MG, UNK
     Route: 048
     Dates: start: 20100811, end: 20101030

REACTIONS (3)
  - BLOOD CALCIUM INCREASED [None]
  - DRUG INEFFECTIVE [None]
  - VAGINAL HAEMORRHAGE [None]
